FAERS Safety Report 4785033-8 (Version None)
Quarter: 2005Q3

REPORT INFORMATION
  Report Type: 
  Country: None (occurrence: None)
  Receive Date: 20050928
  Receipt Date: 20050914
  Transmission Date: 20060218
  Serious: Yes (Other)
  Sender: FDA-Public Use
  Company Number: US_0502112722

PATIENT
  Age: 41 Year
  Sex: Female
  Weight: 105 kg

DRUGS (3)
  1. ZYPREXA [Suspect]
     Indication: INSOMNIA
     Dosage: 5 MG AT BEDTIME
     Dates: start: 20040301, end: 20050101
  2. ZYPREXA [Suspect]
     Indication: PSYCHOTIC DISORDER
     Dosage: 5 MG AT BEDTIME
     Dates: start: 20040301, end: 20050101
  3. ZYPREXA [Suspect]
     Indication: SCHIZOPHRENIA
     Dosage: 5 MG AT BEDTIME
     Dates: start: 20040301, end: 20050101

REACTIONS (21)
  - ABDOMINAL PAIN [None]
  - ANAEMIA [None]
  - BLOOD CALCIUM INCREASED [None]
  - BLOOD CHLORIDE DECREASED [None]
  - BLOOD UREA DECREASED [None]
  - CHILLS [None]
  - DIABETES MELLITUS NON-INSULIN-DEPENDENT [None]
  - DIZZINESS [None]
  - GLUCOSE TOLERANCE IMPAIRED [None]
  - HAEMORRHOIDS [None]
  - HEADACHE [None]
  - HYPERGLYCAEMIA [None]
  - HYPERLIPIDAEMIA [None]
  - HYPERTENSION [None]
  - HYPOKALAEMIA [None]
  - MENOPAUSE [None]
  - MENSTRUAL DISORDER [None]
  - PRURITUS [None]
  - PYREXIA [None]
  - RECTAL HAEMORRHAGE [None]
  - WEIGHT DECREASED [None]
